FAERS Safety Report 14653865 (Version 2)
Quarter: 2019Q2

REPORT INFORMATION
  Report Type: Spontaneous
  Country: US (occurrence: US)
  Receive Date: 20180319
  Receipt Date: 20190524
  Transmission Date: 20190711
  Serious: No
  Sender: FDA-Public Use
  Company Number: US-PFIZER INC-2018112172

PATIENT
  Age: 74 Year
  Sex: Female

DRUGS (1)
  1. XELJANZ XR [Suspect]
     Active Substance: TOFACITINIB CITRATE
     Indication: RHEUMATOID ARTHRITIS
     Dosage: 11 MG, DAILY
     Route: 048
     Dates: start: 2018

REACTIONS (7)
  - Joint stiffness [Unknown]
  - Arthralgia [Unknown]
  - Infection [Unknown]
  - Swelling [Unknown]
  - Tenderness [Unknown]
  - Peripheral swelling [Unknown]
  - Erythema [Unknown]
